FAERS Safety Report 8819081 (Version 1)
Quarter: 2012Q4

REPORT INFORMATION
  Report Type: Spontaneous
  Country: US (occurrence: None)
  Receive Date: 20121003
  Receipt Date: 20121003
  Transmission Date: 20130627
  Serious: Yes (Life-Threatening, Other)
  Sender: FDA-Public Use
  Company Number: 2012P1059732

PATIENT
  Age: 50 Year
  Sex: Female
  Weight: 73.94 kg

DRUGS (12)
  1. MALATHION [Suspect]
     Indication: HEAD LICE
     Route: 061
     Dates: start: 20120807, end: 20120807
  2. MALATHION [Suspect]
     Indication: HEAD LICE
     Route: 061
     Dates: start: 20120828, end: 20120828
  3. MALATHION [Suspect]
     Indication: HEAD LICE
     Route: 061
     Dates: start: 20120903, end: 20120903
  4. PERMETHRIN [Suspect]
     Indication: LICE INFESTATION
     Dates: start: 20120917, end: 20120917
  5. FLU SHOT [Suspect]
     Dates: start: 20120906, end: 20120906
  6. ASPIRIN [Concomitant]
  7. DOXYCYCLINE [Concomitant]
  8. LEVOTHYROXINE [Concomitant]
  9. DIOVAN [Concomitant]
  10. CARBAMAZEPINE [Concomitant]
  11. KLONOPIN [Concomitant]
  12. TRAMADOL [Concomitant]

REACTIONS (11)
  - Influenza [None]
  - Weight increased [None]
  - Drug ineffective [None]
  - Pain [None]
  - Frustration [None]
  - Anger [None]
  - Aggression [None]
  - Hyperphagia [None]
  - Tobacco user [None]
  - Suicidal ideation [None]
  - Partner stress [None]
